FAERS Safety Report 25773421 (Version 1)
Quarter: 2025Q3

REPORT INFORMATION
  Report Type: Other
  Country: EU (occurrence: EU)
  Receive Date: 20250908
  Receipt Date: 20250908
  Transmission Date: 20251021
  Serious: Yes (Hospitalization)
  Sender: Atnahs Healthcare
  Company Number: None

PATIENT

DRUGS (2)
  1. EC-NAPROSYN [Suspect]
     Active Substance: NAPROXEN
     Indication: Product used for unknown indication
     Route: 065
  2. IBUPROFEN [Suspect]
     Active Substance: IBUPROFEN
     Indication: Product used for unknown indication
     Route: 065

REACTIONS (5)
  - Blood lactate dehydrogenase abnormal [Unknown]
  - Reticulocyte count increased [Unknown]
  - Transaminases increased [Recovering/Resolving]
  - Serum ferritin increased [Unknown]
  - Haptoglobin abnormal [Unknown]
